FAERS Safety Report 24714638 (Version 1)
Quarter: 2024Q4

REPORT INFORMATION
  Report Type: Spontaneous
  Country: US (occurrence: US)
  Receive Date: 20241209
  Receipt Date: 20241209
  Transmission Date: 20250114
  Serious: Yes (Hospitalization)
  Sender: BRISTOL-MYERS SQUIBB COMPANY
  Company Number: US-BRISTOL-MYERS SQUIBB COMPANY-2024-188202

PATIENT
  Age: 58 Year
  Sex: Female

DRUGS (6)
  1. POMALYST [Suspect]
     Active Substance: POMALIDOMIDE
     Indication: Plasma cell myeloma recurrent
     Route: 048
     Dates: start: 201910
  2. POMALYST [Suspect]
     Active Substance: POMALIDOMIDE
     Indication: Plasma cell myeloma
  3. KYPROLIS [Concomitant]
     Active Substance: CARFILZOMIB
     Dosage: SDV (SINGLE DOSE VIAL)
  4. ZOLEDRONIC ACID [Concomitant]
     Active Substance: ZOLEDRONIC ACID
     Dosage: SDV (SINGLE DOSE VIAL)
  5. BORTEZOMIB [Concomitant]
     Active Substance: BORTEZOMIB
     Dosage: SDV (SINGLE DOSE VIAL)
  6. CYCLOPHOSPHAMIDE [Concomitant]
     Active Substance: CYCLOPHOSPHAMIDE
     Dosage: SDV (SINGLE DOSE VIAL)

REACTIONS (1)
  - Hospitalisation [Unknown]
